FAERS Safety Report 8587474 (Version 2)
Quarter: 2012Q4

REPORT INFORMATION
  Report Type: 
  Country: US (occurrence: US)
  Receive Date: 20120531
  Receipt Date: 20121226
  Transmission Date: 20130627
  Serious: Yes (Hospitalization)
  Sender: FDA-Public Use
  Company Number: US-BAYER-2012-052605

PATIENT
  Age: 50 Year
  Sex: Female
  Weight: 86.17 kg

DRUGS (8)
  1. YAZ [Suspect]
     Indication: CONTRACEPTION
     Dosage: UNK
     Dates: start: 20061127, end: 20070122
  2. TRIAMTERENE AND HYDROCHLOROTHIAZIDE [Concomitant]
     Dosage: 37.5-25 mg
  3. XELODA [Concomitant]
     Indication: RECTAL CARCINOMA
  4. NEXIUM [Concomitant]
     Indication: HEARTBURN
     Dosage: 40 mg, UNK
  5. FEXOFENADINE [Concomitant]
     Dosage: UNK UNK, PRN
  6. LEVOXYL [Concomitant]
     Indication: HYPOTHYROIDISM
     Dosage: 150 ng, UNK
  7. CLINDAMYCIN [Concomitant]
  8. LEVAQUIN [Concomitant]

REACTIONS (9)
  - Deep vein thrombosis [None]
  - Injury [None]
  - Pain in extremity [None]
  - Oedema peripheral [None]
  - Emotional distress [None]
  - Pain [None]
  - General physical health deterioration [None]
  - Anxiety [None]
  - Stress [None]
